FAERS Safety Report 9322549 (Version 1)
Quarter: 2013Q2

REPORT INFORMATION
  Report Type: Spontaneous
  Country: US (occurrence: US)
  Receive Date: 20130531
  Receipt Date: 20130531
  Transmission Date: 20140414
  Serious: No
  Sender: FDA-Public Use
  Company Number: US-ASTRAZENECA-2013SE35439

PATIENT
  Age: 58 Year
  Sex: Female
  Weight: 62.6 kg

DRUGS (3)
  1. ARIMIDEX [Suspect]
     Indication: BREAST CANCER FEMALE
     Dosage: UNKNOWN
     Route: 048
     Dates: start: 201211, end: 201303
  2. ARIMIDEX [Suspect]
     Indication: BREAST CANCER FEMALE
     Dosage: ANASTROZOLE 25 MG DAILY
     Route: 048
     Dates: start: 201304, end: 2013
  3. ARIMIDEX [Suspect]
     Indication: BREAST CANCER FEMALE
     Dosage: ANASTROZOLE
     Route: 048
     Dates: end: 201305

REACTIONS (7)
  - Pain [Unknown]
  - Prothrombin time prolonged [Unknown]
  - Gingival bleeding [Unknown]
  - Weight increased [Unknown]
  - Myalgia [Unknown]
  - Arthralgia [Unknown]
  - Uterine haemorrhage [Recovered/Resolved]
